FAERS Safety Report 8863160 (Version 1)
Quarter: 2012Q4

REPORT INFORMATION
  Report Type: Report from Study
  Country: DE (occurrence: DE)
  Receive Date: 20121026
  Receipt Date: 20121026
  Transmission Date: 20130627
  Serious: Yes (Hospitalization)
  Sender: FDA-Public Use
  Company Number: DE-ROCHE-1146277

PATIENT
  Age: 47 Year
  Sex: Male
  Weight: 91 kg

DRUGS (5)
  1. BEVACIZUMAB [Suspect]
     Indication: BRAIN NEOPLASM MALIGNANT
     Dosage: last dose prior to SAE: 02/Oct/2012
     Route: 042
     Dates: start: 20120724
  2. LEVETIRACETAM [Concomitant]
     Route: 048
     Dates: start: 201110
  3. METFORMIN [Concomitant]
     Indication: DIABETES MELLITUS
     Route: 048
  4. XELEVIA [Concomitant]
     Indication: DIABETES MELLITUS
     Route: 048
  5. ENALAPRIL [Concomitant]
     Indication: HYPERTENSION
     Route: 048
     Dates: start: 20120904

REACTIONS (1)
  - Hemiparesis [Not Recovered/Not Resolved]
